FAERS Safety Report 5294678-0 (Version None)
Quarter: 2007Q2

REPORT INFORMATION
  Report Type: 
  Country: None (occurrence: None)
  Receive Date: 20070409
  Receipt Date: 20070409
  Transmission Date: 20071010
  Serious: Yes (Death, Hospitalization)
  Sender: FDA-Public Use
  Company Number: None

PATIENT
  Sex: Male
  Weight: 68 kg

DRUGS (4)
  1. TARCEVA [Suspect]
     Indication: PROSTATE CANCER
     Dosage: 150MG  QD  PO
     Route: 048
     Dates: start: 20061212, end: 20070205
  2. NEBULIZERS [Concomitant]
  3. O2 [Concomitant]
  4. SUD BOOTS [Concomitant]

REACTIONS (4)
  - DEEP VEIN THROMBOSIS [None]
  - EJECTION FRACTION DECREASED [None]
  - PULMONARY EMBOLISM [None]
  - PULMONARY HYPERTENSION [None]
